FAERS Safety Report 8805715 (Version 2)
Quarter: 2013Q1

REPORT INFORMATION
  Report Type: Report from Study
  Country: US (occurrence: US)
  Receive Date: 20120924
  Receipt Date: 20130118
  Transmission Date: 20140127
  Serious: Yes (Hospitalization, Other)
  Sender: FDA-Public Use
  Company Number: US-ABBOTT-12P-163-0980976-00

PATIENT
  Age: 53 None
  Sex: Female
  Weight: 71.73 kg

DRUGS (13)
  1. HUMIRA [Suspect]
     Indication: RHEUMATOID ARTHRITIS
  2. TRICOR [Concomitant]
     Indication: BLOOD TRIGLYCERIDES INCREASED
     Dosage: DAILY
     Route: 048
  3. LEXAPRO [Concomitant]
     Indication: ANXIETY
     Dosage: DAILY
     Route: 048
  4. LEXAPRO [Concomitant]
     Indication: GASTROINTESTINAL PAIN
  5. ACYCLOVIR [Concomitant]
     Indication: ORAL HERPES
     Dosage: FOR 5 DAYS AS REQUIRED
     Route: 048
  6. ASA [Concomitant]
     Indication: ROUTINE HEALTH MAINTENANCE
     Dosage: DAILY
     Route: 048
  7. CALCIUM+D [Concomitant]
     Indication: MINERAL SUPPLEMENTATION
     Route: 048
  8. AMOXICILLIN-PREVENTATIVE [Concomitant]
     Indication: PROPHYLAXIS
  9. AMOXICILLIN-PREVENTATIVE [Concomitant]
     Indication: JOINT ARTHROPLASTY
  10. LEVOTHYROXINE [Concomitant]
     Indication: HYPOTHYROIDISM
     Dosage: 50MCG DAILY
     Route: 048
  11. COUMADIN [Concomitant]
     Dates: start: 201209
  12. PLAQUENIL [Concomitant]
  13. CREON [Concomitant]
     Indication: ENZYME SUPPLEMENTATION
     Dosage: BEFORE MEALS AND PRN

REACTIONS (20)
  - Osteonecrosis [Unknown]
  - Injection site pain [Unknown]
  - Injection site bruising [Unknown]
  - Hypothyroidism [Unknown]
  - Gastric disorder [Unknown]
  - Pancreatic duct stenosis [Unknown]
  - Sphincter of Oddi dysfunction [Unknown]
  - Sepsis [Unknown]
  - Pancreatitis acute [Unknown]
  - Pain [Unknown]
  - Blood potassium decreased [Unknown]
  - Pancreatitis [Unknown]
  - Staphylococcal skin infection [Unknown]
  - Onychomycosis [Unknown]
  - Rheumatoid arthritis [Unknown]
  - Fibromyalgia [Unknown]
  - Nausea [Unknown]
  - Bone pain [Unknown]
  - Myalgia [Unknown]
  - Muscle spasms [Unknown]
